FAERS Safety Report 21024951 (Version 1)
Quarter: 2022Q2

REPORT INFORMATION
  Report Type: Spontaneous
  Country: US (occurrence: None)
  Receive Date: 20220629
  Receipt Date: 20220629
  Transmission Date: 20220721
  Serious: Yes (Death)
  Sender: FDA-Public Use
  Company Number: US-ROCHE-3127745

PATIENT
  Age: 82 Year
  Sex: Male

DRUGS (9)
  1. ESBRIET [Suspect]
     Active Substance: PIRFENIDONE
     Indication: Idiopathic pulmonary fibrosis
     Dosage: TAKE 3 CAPSULES (801 MG) BY MOUTH 3 TIMES A DAY AT THE SAME TIME EACH DAY
     Route: 048
     Dates: start: 20170726
  2. ALLOPURINOL [Concomitant]
     Active Substance: ALLOPURINOL
  3. DOXYCYCLINE [Concomitant]
     Active Substance: DOXYCYCLINE
  4. LOSARTAN POTASSIUM [Concomitant]
     Active Substance: LOSARTAN POTASSIUM
  5. ATORVASTATIN [Concomitant]
     Active Substance: ATORVASTATIN
  6. MUPIROCIN [Concomitant]
     Active Substance: MUPIROCIN
  7. PREDNISONE [Concomitant]
     Active Substance: PREDNISONE
  8. TAMSULOSIN [Concomitant]
     Active Substance: TAMSULOSIN
  9. ALPRAZOLAM [Concomitant]
     Active Substance: ALPRAZOLAM

REACTIONS (1)
  - Death [Fatal]

NARRATIVE: CASE EVENT DATE: 20220612
